FAERS Safety Report 13971303 (Version 1)
Quarter: 2017Q3

REPORT INFORMATION
  Report Type: Spontaneous
  Country: US (occurrence: US)
  Receive Date: 20170914
  Receipt Date: 20170914
  Transmission Date: 20171128
  Serious: Yes (Life-Threatening, Hospitalization)
  Sender: FDA-Public Use
  Company Number: US-TEVA-806373USA

PATIENT
  Age: 43 Year
  Sex: Female

DRUGS (3)
  1. LEVOFLOXACIN. [Concomitant]
     Active Substance: LEVOFLOXACIN
     Indication: NASAL CONGESTION
     Route: 065
  2. LEVOFLOXACIN. [Concomitant]
     Active Substance: LEVOFLOXACIN
     Indication: COUGH
     Route: 065
  3. PHENTERMINE. [Suspect]
     Active Substance: PHENTERMINE
     Route: 065

REACTIONS (3)
  - Hypertension [Unknown]
  - Subarachnoid haemorrhage [Recovered/Resolved]
  - Hydrocephalus [Recovered/Resolved]
